FAERS Safety Report 25322584 (Version 1)
Quarter: 2025Q2

REPORT INFORMATION
  Report Type: Spontaneous
  Country: US (occurrence: US)
  Receive Date: 20250516
  Receipt Date: 20250516
  Transmission Date: 20250716
  Serious: Yes (Death)
  Sender: ROCHE
  Company Number: US-ROCHE-10000281453

PATIENT
  Age: 74 Year
  Sex: Female

DRUGS (1)
  1. AVASTIN [Suspect]
     Active Substance: BEVACIZUMAB
     Indication: Ovarian cancer
     Route: 058
     Dates: start: 20250411

REACTIONS (1)
  - Death [Fatal]

NARRATIVE: CASE EVENT DATE: 20250411
